FAERS Safety Report 15130047 (Version 4)
Quarter: 2019Q4

REPORT INFORMATION
  Report Type: Report from Study
  Country: FR (occurrence: FR)
  Receive Date: 20180711
  Receipt Date: 20191120
  Transmission Date: 20200122
  Serious: Yes (Death, Life-Threatening, Hospitalization, Other)
  Sender: FDA-Public Use
  Company Number: FR-JAZZ-2018-FR-010590

PATIENT

DRUGS (1)
  1. DEFITELIO [Suspect]
     Active Substance: DEFIBROTIDE SODIUM
     Indication: VENOOCCLUSIVE LIVER DISEASE
     Dosage: 25 MG/KG, QD
     Route: 042
     Dates: start: 20160628, end: 20160704

REACTIONS (7)
  - Myelofibrosis [Fatal]
  - Disease progression [Fatal]
  - Multiple organ dysfunction syndrome [Fatal]
  - Cytomegalovirus infection [Fatal]
  - Incorrect product administration duration [Unknown]
  - Drug ineffective [Fatal]
  - Cerebral toxoplasmosis [Fatal]

NARRATIVE: CASE EVENT DATE: 20160620
